FAERS Safety Report 18449377 (Version 2)
Quarter: 2020Q4

REPORT INFORMATION
  Report Type: Spontaneous
  Country: US (occurrence: US)
  Receive Date: 20201030
  Receipt Date: 20201102
  Transmission Date: 20210114
  Serious: No
  Sender: FDA-Public Use
  Company Number: US-PFIZER INC-2020419051

PATIENT
  Age: 77 Year
  Sex: Female
  Weight: 82.55 kg

DRUGS (1)
  1. BOSULIF [Suspect]
     Active Substance: BOSUTINIB MONOHYDRATE
     Dosage: 400 MG, 1X/DAY (400MG ONCE A 6PM)
     Dates: start: 20200304

REACTIONS (6)
  - Ear infection [Unknown]
  - Visual impairment [Recovered/Resolved]
  - Malaise [Recovering/Resolving]
  - Feeling hot [Recovered/Resolved]
  - Body temperature abnormal [Not Recovered/Not Resolved]
  - Ear disorder [Not Recovered/Not Resolved]

NARRATIVE: CASE EVENT DATE: 202010
